FAERS Safety Report 7812011-4 (Version None)
Quarter: 2011Q4

REPORT INFORMATION
  Report Type: 
  Country: None (occurrence: None)
  Receive Date: 20111013
  Receipt Date: 20111010
  Transmission Date: 20120403
  Serious: Yes (Hospitalization, Other)
  Sender: FDA-Public Use
  Company Number: US-BAYER-2011-092930

PATIENT
  Age: 61 Year
  Sex: Female

DRUGS (3)
  1. NEXAVAR [Suspect]
     Dosage: 400 MG, BID (1 TABLET BID)
     Dates: start: 20110901
  2. NEXAVAR [Suspect]
     Dosage: 200 MG, BID
  3. NEXAVAR [Suspect]
     Indication: HEPATIC NEOPLASM MALIGNANT
     Dosage: 800 MG, BID
     Dates: start: 20110919

REACTIONS (5)
  - WEIGHT DECREASED [None]
  - LETHARGY [None]
  - DECREASED APPETITE [None]
  - ASTHENIA [None]
  - CONFUSIONAL STATE [None]
